FAERS Safety Report 24630445 (Version 1)
Quarter: 2024Q4

REPORT INFORMATION
  Report Type: Spontaneous
  Country: US (occurrence: None)
  Receive Date: 20241115
  Receipt Date: 20241115
  Transmission Date: 20250114
  Serious: Yes (Death)
  Sender: Public
  Company Number: None

PATIENT
  Age: 55 Year
  Sex: Male

DRUGS (2)
  1. BRAFTOVI [Suspect]
     Active Substance: ENCORAFENIB
     Indication: Colon cancer
     Dosage: 300 MG DAILY ORAL?
     Route: 048
     Dates: start: 202402
  2. LONSURF [Concomitant]

REACTIONS (2)
  - Refusal of treatment by patient [None]
  - Intentional dose omission [None]

NARRATIVE: CASE EVENT DATE: 20241027
